FAERS Safety Report 11510619 (Version 1)
Quarter: 2015Q3

REPORT INFORMATION
  Report Type: Spontaneous
  Country: US (occurrence: US)
  Receive Date: 20150915
  Receipt Date: 20150915
  Transmission Date: 20151125
  Serious: No
  Sender: FDA-Public Use
  Company Number: US-JNJFOC-20150716079

PATIENT
  Age: 78 Year
  Sex: Male
  Weight: 104.33 kg

DRUGS (2)
  1. MULTIVITAMIN TABLET [Concomitant]
     Indication: NUTRITIONAL SUPPLEMENTATION
     Route: 065
  2. TYLENOL EXTRA STRENGTH [Suspect]
     Active Substance: ACETAMINOPHEN
     Indication: ARTHRALGIA
     Dosage: MORNING AND AFTERNOON/EVENING
     Route: 048

REACTIONS (2)
  - Incorrect dose administered [Unknown]
  - Drug effect incomplete [Unknown]
